FAERS Safety Report 17814137 (Version 1)
Quarter: 2020Q2

REPORT INFORMATION
  Report Type: Spontaneous
  Country: ES (occurrence: ES)
  Receive Date: 20200521
  Receipt Date: 20200521
  Transmission Date: 20200714
  Serious: Yes (Other)
  Sender: FDA-Public Use
  Company Number: ES-INSUD PHARMA-2005ES00074

PATIENT

DRUGS (4)
  1. NUVESSA [Suspect]
     Active Substance: METRONIDAZOLE
     Indication: HELICOBACTER INFECTION
     Dosage: 500 MILLIGRAM EVERY 12 HOURS
     Route: 065
  2. OMEPRAZOLE. [Suspect]
     Active Substance: OMEPRAZOLE
     Indication: HELICOBACTER INFECTION
     Dosage: 20 MILLIGRAM EVERY 12 HOURS
     Route: 065
  3. AMOXICILLIN. [Suspect]
     Active Substance: AMOXICILLIN
     Indication: HELICOBACTER INFECTION
     Dosage: 1 GRAM EVERY 12 HOURS
     Route: 065
  4. CLARITHROMYCIN. [Suspect]
     Active Substance: CLARITHROMYCIN
     Indication: HELICOBACTER INFECTION
     Dosage: 500 MILLIGRAM EVERY 12 HOURS
     Route: 065

REACTIONS (3)
  - Food intolerance [Recovered/Resolved]
  - Diarrhoea haemorrhagic [Recovered/Resolved]
  - Clostridium difficile infection [Recovered/Resolved]
